FAERS Safety Report 16984861 (Version 2)
Quarter: 2019Q4

REPORT INFORMATION
  Report Type: Report from Study
  Country: JP (occurrence: JP)
  Receive Date: 20191101
  Receipt Date: 20191114
  Transmission Date: 20200122
  Serious: Yes (Hospitalization)
  Sender: FDA-Public Use
  Company Number: JP-EISAI MEDICAL RESEARCH-EC-2019-064522

PATIENT
  Age: 51 Year
  Sex: Male
  Weight: 78 kg

DRUGS (22)
  1. FYCOMPA [Suspect]
     Active Substance: PERAMPANEL
     Indication: PARTIAL SEIZURES
     Route: 048
     Dates: start: 20180115, end: 20180118
  2. LAMOTRIGINE. [Concomitant]
     Active Substance: LAMOTRIGINE
  3. FYCOMPA [Suspect]
     Active Substance: PERAMPANEL
     Route: 048
     Dates: start: 20180824, end: 20180912
  4. LACOSAMIDE. [Concomitant]
     Active Substance: LACOSAMIDE
  5. D-CHLORPHENIRAMINE [Concomitant]
  6. ALOSENN [Concomitant]
  7. MAGNESIUM OXIDE. [Concomitant]
     Active Substance: MAGNESIUM OXIDE
  8. LOXOPROFEN [Concomitant]
     Active Substance: LOXOPROFEN
  9. FYCOMPA [Suspect]
     Active Substance: PERAMPANEL
     Route: 048
     Dates: start: 20180208, end: 20180419
  10. FYCOMPA [Suspect]
     Active Substance: PERAMPANEL
     Route: 048
     Dates: start: 20180420, end: 20180524
  11. HYDROCORTISONE. [Concomitant]
     Active Substance: HYDROCORTISONE
  12. PREDNISOLONE. [Concomitant]
     Active Substance: PREDNISOLONE
  13. FYCOMPA [Suspect]
     Active Substance: PERAMPANEL
     Route: 048
     Dates: start: 20180727, end: 20180823
  14. FYCOMPA [Suspect]
     Active Substance: PERAMPANEL
     Route: 048
     Dates: start: 20180525, end: 20180726
  15. BROMOCRIPTINE MESILATE [Concomitant]
     Active Substance: BROMOCRIPTINE
  16. METHADERM [Concomitant]
     Active Substance: DEXAMETHASONE DIPROPIONATE
  17. PHENOBARBITAL. [Concomitant]
     Active Substance: PHENOBARBITAL
  18. FYCOMPA [Suspect]
     Active Substance: PERAMPANEL
     Route: 048
     Dates: start: 20180119, end: 20180207
  19. LEVOTHYROXINE SODIUM. [Concomitant]
     Active Substance: LEVOTHYROXINE SODIUM
  20. SENNOSIDE [Concomitant]
     Active Substance: SENNOSIDES
  21. FAMOTIDINE. [Concomitant]
     Active Substance: FAMOTIDINE
  22. CARBAMAZEPINE. [Concomitant]
     Active Substance: CARBAMAZEPINE

REACTIONS (1)
  - Seizure [Recovering/Resolving]

NARRATIVE: CASE EVENT DATE: 201809
